FAERS Safety Report 13523482 (Version 1)
Quarter: 2017Q2

REPORT INFORMATION
  Report Type: Spontaneous
  Country: US (occurrence: US)
  Receive Date: 20170508
  Receipt Date: 20170508
  Transmission Date: 20170830
  Serious: No
  Sender: FDA-Public Use
  Company Number: US-PFIZER INC-2017195080

PATIENT
  Sex: Female

DRUGS (1)
  1. XELJANZ XR [Suspect]
     Active Substance: TOFACITINIB CITRATE
     Dosage: 11 MG, DAILY

REACTIONS (7)
  - Arthritis [Not Recovered/Not Resolved]
  - Arthralgia [Unknown]
  - C-reactive protein increased [Unknown]
  - Joint stiffness [Unknown]
  - Musculoskeletal stiffness [Recovering/Resolving]
  - Overweight [Unknown]
  - Malaise [Unknown]
